FAERS Safety Report 5842719-1 (Version None)
Quarter: 2008Q3

REPORT INFORMATION
  Report Type: 
  Country: None (occurrence: None)
  Receive Date: 20080808
  Receipt Date: 20080729
  Transmission Date: 20090109
  Serious: Yes (Life-Threatening, Hospitalization, Other)
  Sender: FDA-Public Use
  Company Number: 232153K07USA

PATIENT
  Age: 68 Year
  Sex: Female
  Weight: 95.2554 kg

DRUGS (21)
  1. REBIF [Suspect]
     Indication: MULTIPLE SCLEROSIS
     Dosage: 44 MCG, 3 IN 1 WEEKS, SUBCUTANEOUS
     Route: 058
     Dates: start: 20050208
  2. LASIX (FUROSEMIDE /00032601/) [Concomitant]
  3. CATAPRES [Concomitant]
  4. IMDUR [Concomitant]
  5. PLAVIX [Concomitant]
  6. HUMALOG [Concomitant]
  7. METFORMIN HCL [Concomitant]
  8. PROZAC [Concomitant]
  9. XANAX [Concomitant]
  10. LUNESTA (ALL OTHER NON-THERAPEUTIC PRODUCTS) [Concomitant]
  11. PREVACID [Concomitant]
  12. NEURONTIN [Concomitant]
  13. DITROPAN [Concomitant]
  14. ASPIRIN [Concomitant]
  15. TOPROL-XL [Concomitant]
  16. CRESTOR [Concomitant]
  17. ATACAND [Concomitant]
  18. COLCHICINE (COLCHICINE) [Concomitant]
  19. VITAMIN B12 [Concomitant]
  20. PROCRIT [Concomitant]
  21. MTP (ALL OTHER THERAPEUTIC PRODUCTS) [Concomitant]

REACTIONS (7)
  - BLOOD PRESSURE INCREASED [None]
  - CARDIAC FAILURE CONGESTIVE [None]
  - DECUBITUS ULCER [None]
  - DYSPNOEA EXERTIONAL [None]
  - MACULAR DEGENERATION [None]
  - ORTHOPNOEA [None]
  - RENAL FAILURE [None]
